FAERS Safety Report 5748985-5 (Version None)
Quarter: 2008Q2

REPORT INFORMATION
  Report Type: 
  Country: None (occurrence: None)
  Receive Date: 20080527
  Receipt Date: 20080522
  Transmission Date: 20081010
  Serious: Yes (Other)
  Sender: FDA-Public Use
  Company Number: HK-JNJFOC-20080200434

PATIENT
  Sex: Male

DRUGS (6)
  1. PREZISTA [Suspect]
     Route: 048
  2. PREZISTA [Suspect]
     Indication: HIV INFECTION
     Dosage: TEMPORARY STOP
     Route: 048
  3. RITONAVIR [Suspect]
     Indication: HIV INFECTION
     Route: 048
  4. STOCRIN [Suspect]
     Indication: DRUG USE FOR UNKNOWN INDICATION
     Route: 065
  5. LAMIVUDINE [Concomitant]
     Indication: HIV INFECTION
     Route: 065
  6. EFAVIRENZ [Concomitant]
     Indication: HIV INFECTION
     Route: 065

REACTIONS (1)
  - HEPATITIS [None]
